FAERS Safety Report 5363540-7 (Version None)
Quarter: 2007Q2

REPORT INFORMATION
  Report Type: 
  Country: None (occurrence: None)
  Receive Date: 20070618
  Receipt Date: 20070618
  Transmission Date: 20071010
  Serious: Yes (Life-Threatening, Hospitalization, Other)
  Sender: FDA-Public Use
  Company Number: None

PATIENT
  Age: 51 Year
  Sex: Female
  Weight: 71.6683 kg

DRUGS (2)
  1. CELEBREX [Suspect]
     Indication: CARPAL TUNNEL SYNDROME
     Dosage: AS ORDERED
     Dates: start: 20010910, end: 20020215
  2. BEXTRA [Suspect]

REACTIONS (12)
  - ABDOMINAL PAIN [None]
  - ASTHENIA [None]
  - BLOOD PRESSURE DECREASED [None]
  - CARDIAC DISORDER [None]
  - DIARRHOEA [None]
  - FAECAL INCONTINENCE [None]
  - FAECES DISCOLOURED [None]
  - HAEMATEMESIS [None]
  - HAEMATOCHEZIA [None]
  - HYPERHIDROSIS [None]
  - HYPERSOMNIA [None]
  - LOSS OF CONSCIOUSNESS [None]
